FAERS Safety Report 13476738 (Version 1)
Quarter: 2017Q2

REPORT INFORMATION
  Report Type: Spontaneous
  Country: US (occurrence: US)
  Receive Date: 20170424
  Receipt Date: 20170424
  Transmission Date: 20170830
  Serious: No
  Sender: FDA-Public Use
  Company Number: None

PATIENT
  Age: 55 Year
  Sex: Female

DRUGS (2)
  1. EPCLUSA [Suspect]
     Active Substance: SOFOSBUVIR\VELPATASVIR
     Indication: OSTEOARTHRITIS
     Dosage: 1 TAB QD ORAL?3/7/2017 STIL TAKING 4/24/217
     Route: 048
     Dates: end: 20170424
  2. EPCLUSA [Suspect]
     Active Substance: SOFOSBUVIR\VELPATASVIR
     Indication: CHRONIC HEPATITIS C
     Dosage: 1 TAB QD ORAL?3/7/2017 STIL TAKING 4/24/217
     Route: 048
     Dates: end: 20170424

REACTIONS (3)
  - Headache [None]
  - Insomnia [None]
  - Fatigue [None]

NARRATIVE: CASE EVENT DATE: 20170424
